FAERS Safety Report 16651708 (Version 1)
Quarter: 2019Q3

REPORT INFORMATION
  Report Type: Spontaneous
  Country: JP (occurrence: JP)
  Receive Date: 20190731
  Receipt Date: 20190731
  Transmission Date: 20191004
  Serious: Yes (Other)
  Sender: FDA-Public Use
  Company Number: JP-ABBVIE-19K-087-2870032-00

PATIENT
  Age: 79 Year
  Sex: Female

DRUGS (1)
  1. DUODOPA [Suspect]
     Active Substance: CARBIDOPA\LEVODOPA
     Indication: PARKINSON^S DISEASE
     Dosage: MD:  ML??CD: 1.5 ML/HR ? HRS??ED:  ML/UNIT ?
     Route: 050
     Dates: start: 20190228

REACTIONS (3)
  - Procedural intestinal perforation [Unknown]
  - Stoma site discharge [Unknown]
  - Stoma site odour [Unknown]

NARRATIVE: CASE EVENT DATE: 2019
